FAERS Safety Report 6181398-3 (Version None)
Quarter: 2009Q2

REPORT INFORMATION
  Report Type: 
  Country: None (occurrence: None)
  Receive Date: 20090501
  Receipt Date: 20090113
  Transmission Date: 20091009
  Serious: No
  Sender: FDA-Public Use
  Company Number: US024704

PATIENT
  Age: 63 Year
  Sex: Male
  Weight: 98.7 kg

DRUGS (4)
  1. TREANDA [Suspect]
     Indication: CHRONIC LYMPHOCYTIC LEUKAEMIA
     Dosage: 180 MG (90 MG/M2) , INTRAVENOUS
     Route: 042
  2. TREANDA [Suspect]
     Indication: NODAL MARGINAL ZONE B-CELL LYMPHOMA STAGE IV
     Dosage: 180 MG (90 MG/M2) , INTRAVENOUS
     Route: 042
  3. ATENOLOL [Concomitant]
  4. QUINAPRIL [Concomitant]

REACTIONS (1)
  - EXTRAVASATION [None]
